FAERS Safety Report 8278706-6 (Version None)
Quarter: 2012Q2

REPORT INFORMATION
  Report Type: 
  Country: None (occurrence: None)
  Receive Date: 20120412
  Receipt Date: 20110715
  Transmission Date: 20120825
  Serious: No
  Sender: FDA-Public Use
  Company Number: US-ASTRAZENECA-2011SE22189

PATIENT
  Sex: Female

DRUGS (3)
  1. ZANTAC [Concomitant]
  2. NEXIUM [Suspect]
     Route: 048
  3. PRILOSEC [Suspect]
     Route: 048

REACTIONS (5)
  - WEIGHT DECREASED [None]
  - DRUG DOSE OMISSION [None]
  - GASTRIC ULCER [None]
  - GASTRIC DISORDER [None]
  - ABDOMINAL DISCOMFORT [None]
